FAERS Safety Report 5109980-2 (Version None)
Quarter: 2006Q3

REPORT INFORMATION
  Report Type: 
  Country: None (occurrence: None)
  Receive Date: 20060921
  Receipt Date: 20060912
  Transmission Date: 20061208
  Serious: Yes (Other)
  Sender: FDA-Public Use
  Company Number: US-BAYER-200613887BCC

PATIENT
  Sex: Female
  Weight: 68 kg

DRUGS (11)
  1. ALEVE (CAPLET) [Suspect]
     Indication: HIP ARTHROPLASTY
     Dosage: TOTAL DAILY DOSE: 880 MG  UNIT DOSE: 220 MG
     Route: 048
     Dates: start: 20060801, end: 20060904
  2. HYDROCODONE [Suspect]
     Indication: HIP ARTHROPLASTY
     Dates: start: 20060801, end: 20060904
  3. TYLENOL [Suspect]
     Indication: HIP ARTHROPLASTY
     Dates: start: 20060801, end: 20060904
  4. TOPROL-XL [Concomitant]
  5. DEPAKOTE [Concomitant]
  6. RISPERDAL [Concomitant]
  7. ANTIDEPRESSANT [Concomitant]
  8. ASCORBIC ACID [Concomitant]
  9. FOLIC ACID [Concomitant]
  10. STORE BRAND MULTIVITAMINS [Concomitant]
  11. STORE BRAND LAXATIVES [Concomitant]

REACTIONS (5)
  - ABASIA [None]
  - DIZZINESS [None]
  - DRY EYE [None]
  - EYE PRURITUS [None]
  - SOMNOLENCE [None]
